FAERS Safety Report 6418290-2 (Version None)
Quarter: 2009Q4

REPORT INFORMATION
  Report Type: 
  Country: None (occurrence: None)
  Receive Date: 20091028
  Receipt Date: 20091021
  Transmission Date: 20100525
  Serious: Yes (Hospitalization, Other)
  Sender: FDA-Public Use
  Company Number: US-ABBOTT-09P-163-0604364-00

PATIENT
  Sex: Female
  Weight: 70.37 kg

DRUGS (1)
  1. HUMIRA [Suspect]
     Indication: CROHN'S DISEASE
     Route: 058
     Dates: start: 20071111

REACTIONS (10)
  - ABDOMINAL PAIN [None]
  - AMNESIA [None]
  - CONFUSIONAL STATE [None]
  - CONSTIPATION [None]
  - HYPERSENSITIVITY [None]
  - MIGRAINE [None]
  - PETIT MAL EPILEPSY [None]
  - PROCTITIS [None]
  - STARING [None]
  - VAGINAL INFLAMMATION [None]
